FAERS Safety Report 5125795-3 (Version None)
Quarter: 2006Q3

REPORT INFORMATION
  Report Type: 
  Country: None (occurrence: None)
  Receive Date: 20060817
  Receipt Date: 20060607
  Transmission Date: 20061208
  Serious: Yes (Other)
  Sender: FDA-Public Use
  Company Number: 2006072844

PATIENT
  Age: 60 Year
  Sex: Male

DRUGS (1)
  1. SULFASALAZINE [Suspect]

REACTIONS (4)
  - DERMATITIS EXFOLIATIVE [None]
  - HEPATITIS [None]
  - HYPERSENSITIVITY [None]
  - PYREXIA [None]
